FAERS Safety Report 22229468 (Version 1)
Quarter: 2023Q2

REPORT INFORMATION
  Report Type: Spontaneous
  Country: US (occurrence: None)
  Receive Date: 20230419
  Receipt Date: 20230419
  Transmission Date: 20230721
  Serious: No
  Sender: FDA-Public Use
  Company Number: US-Merck Healthcare KGaA-9397295

PATIENT
  Sex: Female

DRUGS (1)
  1. REBIF [Suspect]
     Active Substance: INTERFERON BETA-1A
     Indication: Multiple sclerosis
     Dosage: REBIF PREFILLED SYRINGE.?(STRENGTH: 44 MCG /0.5ML)
     Route: 058
     Dates: start: 201702

REACTIONS (3)
  - Streptococcal infection [Unknown]
  - Multiple sclerosis relapse [Unknown]
  - Limb injury [Unknown]
